FAERS Safety Report 21493929 (Version 1)
Quarter: 2022Q4

REPORT INFORMATION
  Report Type: Spontaneous
  Country: US (occurrence: US)
  Receive Date: 20221021
  Receipt Date: 20221021
  Transmission Date: 20230113
  Serious: Yes (Life-Threatening, Hospitalization)
  Sender: FDA-Public Use
  Company Number: US-ARBOR PHARMACEUTICALS, LLC-US-2022ARB002672

PATIENT
  Age: 38 Year
  Sex: Female

DRUGS (2)
  1. AMPHETAMINE SULFATE [Suspect]
     Active Substance: AMPHETAMINE SULFATE
     Indication: Product used for unknown indication
     Dosage: UNK
  2. HERBALS\MITRAGYNINE [Suspect]
     Active Substance: HERBALS\MITRAGYNINE
     Indication: Product used for unknown indication
     Dosage: UNK

REACTIONS (2)
  - Cardiac arrest [Unknown]
  - Overdose [Unknown]
